FAERS Safety Report 13653123 (Version 1)
Quarter: 2017Q2

REPORT INFORMATION
  Report Type: Spontaneous
  Country: US (occurrence: US)
  Receive Date: 20170614
  Receipt Date: 20170614
  Transmission Date: 20170830
  Serious: No
  Sender: FDA-Public Use
  Company Number: US-ROCHE-668162

PATIENT
  Sex: Female

DRUGS (2)
  1. DECADRON [Concomitant]
     Active Substance: DEXAMETHASONE
     Indication: METASTASES TO CENTRAL NERVOUS SYSTEM
     Route: 048
  2. XELODA [Suspect]
     Active Substance: CAPECITABINE
     Indication: BREAST CANCER METASTATIC
     Dosage: OTHER INDICATION: BRAIN METASTASES, DOSE: 1000
     Route: 048

REACTIONS (4)
  - Diarrhoea [Recovering/Resolving]
  - Abdominal distension [Unknown]
  - Feeling jittery [Unknown]
  - Burning sensation [Unknown]
